FAERS Safety Report 7572839-5 (Version None)
Quarter: 2011Q2

REPORT INFORMATION
  Report Type: 
  Country: None (occurrence: None)
  Receive Date: 20110627
  Receipt Date: 20110613
  Transmission Date: 20111010
  Serious: Yes (Other)
  Sender: FDA-Public Use
  Company Number: US-CELGENEUS-163-21880-10042482

PATIENT
  Sex: Female
  Weight: 61.744 kg

DRUGS (24)
  1. CARFILZOMIB [Suspect]
     Indication: MULTIPLE MYELOMA
     Dosage: 20 MILLIGRAM/SQ. METER
     Route: 051
     Dates: start: 20090709, end: 20100122
  2. VALACYCLOVIR [Concomitant]
     Dosage: 500 MILLIGRAM
     Route: 048
     Dates: start: 20090709
  3. WARFARIN SODIUM [Concomitant]
     Dosage: 3 MILLIGRAM
     Route: 048
     Dates: start: 20090702, end: 20090803
  4. XANAX [Concomitant]
     Indication: ANXIETY
     Dosage: .25 MILLIGRAM
     Route: 048
     Dates: start: 20090704
  5. IMODIUM [Concomitant]
     Dosage: 1 TABLESPOON
     Route: 048
     Dates: start: 20090801
  6. VENOFER [Concomitant]
     Dosage: 200 MILLIGRAM
     Route: 051
     Dates: start: 20090925
  7. MORPHINE [Concomitant]
     Indication: PROPHYLAXIS
     Route: 065
     Dates: start: 20090630
  8. RESTORIL [Concomitant]
     Indication: INSOMNIA
     Dosage: 15 MILLIGRAM
     Route: 048
     Dates: start: 20090724
  9. ARIXTRA [Concomitant]
     Dosage: 10 MILLIGRAM
     Route: 048
     Dates: start: 20090803
  10. ALOXI [Concomitant]
     Dosage: .25 MILLIGRAM
     Route: 051
     Dates: start: 20090630
  11. DEXAMETHASONE [Suspect]
     Indication: MULTIPLE MYELOMA
     Route: 065
  12. PROCRIT [Concomitant]
     Dosage: 40000 IU
     Route: 051
     Dates: start: 20090722
  13. PROCRIT [Concomitant]
     Dosage: 10000 IU
     Route: 058
     Dates: start: 20090724
  14. NEUPOGEN [Concomitant]
     Indication: NEUTROPENIA
     Dosage: 350 MICROGRAM
     Route: 058
     Dates: start: 20090622
  15. REVLIMID [Suspect]
     Indication: MULTIPLE MYELOMA
     Dosage: 25 MILLIGRAM
     Route: 048
     Dates: start: 20090709
  16. NEXIUM [Concomitant]
     Dosage: 40 MILLIGRAM
     Route: 048
     Dates: start: 20090710
  17. ALOXI [Concomitant]
     Dosage: .125 MILLIGRAM
     Route: 051
     Dates: start: 20090923
  18. VITAMIN E [Concomitant]
     Indication: SUPPLEMENTATION THERAPY
     Dosage: 200 IU (INTERNATIONAL UNIT)
     Route: 048
     Dates: start: 20080717
  19. WARFARIN SODIUM [Concomitant]
     Dosage: 1 MILLIGRAM
     Route: 048
     Dates: start: 20090803
  20. BENADRYL [Concomitant]
     Indication: ANAPHYLAXIS PROPHYLAXIS
     Dosage: 25 MILLIGRAM
     Route: 051
     Dates: start: 20090828
  21. WARFARIN SODIUM [Concomitant]
     Dosage: 4 MILLIGRAM
     Route: 048
     Dates: start: 20090803
  22. PROCRIT [Concomitant]
     Dosage: 20000 IU
     Route: 051
     Dates: start: 20090710
  23. PROCRIT [Concomitant]
     Dosage: 30000 IU
     Route: 051
     Dates: start: 20090716
  24. NEUMEGA [Concomitant]
     Indication: THROMBOCYTOPENIA
     Dosage: 2.5 MILLIGRAM
     Route: 058
     Dates: start: 20090724

REACTIONS (1)
  - BREAST CANCER METASTATIC [None]
